FAERS Safety Report 13803105 (Version 2)
Quarter: 2017Q3

REPORT INFORMATION
  Report Type: Report from Study
  Country: None (occurrence: US)
  Receive Date: 20170728
  Receipt Date: 20170928
  Transmission Date: 20171127
  Serious: Yes (Other)
  Sender: FDA-Public Use
  Company Number: US-ABBVIE-17K-163-1829904-00

PATIENT
  Age: 56 Year
  Sex: Female

DRUGS (4)
  1. METHOTREXATE. [Suspect]
     Active Substance: METHOTREXATE
     Indication: PRODUCT USED FOR UNKNOWN INDICATION
     Route: 065
  2. HUMIRA [Suspect]
     Active Substance: ADALIMUMAB
     Indication: ANKYLOSING SPONDYLITIS
     Route: 058
     Dates: start: 20161214
  3. METHOTREXATE. [Suspect]
     Active Substance: METHOTREXATE
     Dosage: DOSE DECREASED
     Route: 065
  4. HUMIRA [Suspect]
     Active Substance: ADALIMUMAB
     Route: 058
     Dates: start: 201704

REACTIONS (23)
  - Dysstasia [Recovering/Resolving]
  - Arthralgia [Not Recovered/Not Resolved]
  - Fatigue [Recovering/Resolving]
  - Scratch [Unknown]
  - General physical health deterioration [Unknown]
  - Back pain [Recovering/Resolving]
  - Oral candidiasis [Recovered/Resolved]
  - Wound infection [Unknown]
  - Loss of personal independence in daily activities [Recovering/Resolving]
  - Rhinorrhoea [Unknown]
  - Liver scan abnormal [Unknown]
  - Blister [Unknown]
  - Hyperhidrosis [Unknown]
  - Umbilical hernia [Unknown]
  - Joint swelling [Not Recovered/Not Resolved]
  - Joint range of motion decreased [Recovering/Resolving]
  - Musculoskeletal stiffness [Recovered/Resolved]
  - Eructation [Unknown]
  - Hepatic enzyme abnormal [Unknown]
  - Headache [Unknown]
  - Neck pain [Recovering/Resolving]
  - Diarrhoea [Unknown]
  - Pain in extremity [Not Recovered/Not Resolved]

NARRATIVE: CASE EVENT DATE: 201612
